FAERS Safety Report 14708077 (Version 3)
Quarter: 2018Q2

REPORT INFORMATION
  Report Type: Spontaneous
  Country: US (occurrence: US)
  Receive Date: 20180403
  Receipt Date: 20180607
  Transmission Date: 20180711
  Serious: Yes (Other)
  Sender: FDA-Public Use
  Company Number: US-PFIZER INC-2018133721

PATIENT
  Age: 58 Year
  Sex: Female
  Weight: 65.77 kg

DRUGS (3)
  1. CYTOMEL [Suspect]
     Active Substance: LIOTHYRONINE SODIUM
     Indication: AUTOIMMUNE THYROIDITIS
     Dosage: 5 UG, UNK
     Dates: start: 2017
  2. CYTOMEL [Suspect]
     Active Substance: LIOTHYRONINE SODIUM
     Dosage: UNK
     Dates: start: 2018
  3. CYTOMEL [Suspect]
     Active Substance: LIOTHYRONINE SODIUM
     Dosage: 5 UG, 1X/DAY
     Route: 048
     Dates: start: 20180209, end: 2018

REACTIONS (3)
  - Palpitations [Unknown]
  - Drug ineffective [Unknown]
  - Insomnia [Unknown]
